FAERS Safety Report 4997436-7 (Version None)
Quarter: 2006Q2

REPORT INFORMATION
  Report Type: 
  Country: None (occurrence: None)
  Receive Date: 20060509
  Receipt Date: 20050824
  Transmission Date: 20061013
  Serious: Yes (Hospitalization)
  Sender: FDA-Public Use
  Company Number: US-MERCK-0508USA04115

PATIENT
  Age: 61 Year
  Sex: Female
  Weight: 50 kg

DRUGS (7)
  1. VIOXX [Suspect]
     Indication: RHEUMATOID ARTHRITIS
     Route: 048
     Dates: start: 20000504, end: 20020316
  2. AXID [Concomitant]
     Route: 048
  3. OGEN [Concomitant]
     Route: 065
  4. MEDROXYPROGESTERONE ACETATE [Concomitant]
     Route: 065
  5. METHOTREXATE [Concomitant]
     Route: 065
  6. MECLIZINE [Concomitant]
     Route: 048
  7. ALEVE (CAPLET) [Concomitant]
     Indication: PAIN
     Route: 065

REACTIONS (25)
  - ANGINA PECTORIS [None]
  - ANXIETY [None]
  - ASTHENIA [None]
  - BALANCE DISORDER [None]
  - BLOOD PRESSURE SYSTOLIC INCREASED [None]
  - CEREBROVASCULAR ACCIDENT [None]
  - CHEST PAIN [None]
  - COORDINATION ABNORMAL [None]
  - DYSARTHRIA [None]
  - EAR DISORDER [None]
  - GALLBLADDER DISORDER [None]
  - GASTROOESOPHAGEAL REFLUX DISEASE [None]
  - GLIOSIS [None]
  - HAEMANGIOMA [None]
  - HELICOBACTER GASTRITIS [None]
  - HIATUS HERNIA [None]
  - INTERVERTEBRAL DISC DEGENERATION [None]
  - NEUROPATHY PERIPHERAL [None]
  - OBSTRUCTIVE AIRWAYS DISORDER [None]
  - OSTEOPOROSIS [None]
  - RENAL CYST [None]
  - RHEUMATOID ARTHRITIS [None]
  - SLEEP DISORDER [None]
  - SYNOVITIS [None]
  - TRANSIENT ISCHAEMIC ATTACK [None]
